FAERS Safety Report 19983498 (Version 4)
Quarter: 2021Q4

REPORT INFORMATION
  Report Type: Spontaneous
  Country: CZ (occurrence: CZ)
  Receive Date: 20211022
  Receipt Date: 20211129
  Transmission Date: 20220304
  Serious: Yes (Hospitalization, Other)
  Sender: FDA-Public Use
  Company Number: CZ-002147023-NVSC2021CZ154187

PATIENT
  Age: 77 Year
  Sex: Male

DRUGS (8)
  1. METHOTREXATE [Suspect]
     Active Substance: METHOTREXATE
     Indication: Rheumatoid arthritis
     Dosage: 7.5 MILLIGRAM, QW, (7.5 MILLIGRAM, AT A DOSE OF 2-0-1 ONCE A WEEK ON MONDAY)
     Route: 048
  2. SULFASALAZINE [Suspect]
     Active Substance: SULFASALAZINE
     Indication: Rheumatoid arthritis
     Dosage: UNK
     Route: 065
  3. UNSPECIFIED INGREDIENT [Concomitant]
     Active Substance: UNSPECIFIED INGREDIENT
     Indication: Pneumonia
     Dosage: UNK
     Route: 065
  4. UNSPECIFIED INGREDIENT [Concomitant]
     Active Substance: UNSPECIFIED INGREDIENT
     Indication: COVID-19
  5. PREDNISONE [Concomitant]
     Active Substance: PREDNISONE
     Indication: Product used for unknown indication
     Dosage: 10 MILLIGRAM
     Route: 065
  6. METHYLPREDNISOLONE                 /00049602/ [Concomitant]
     Indication: COVID-19 pneumonia
     Dosage: 16 MILLIGRAM, (INCREASED TO 16 MG, INCREASED THE DOSES)
  7. METHYLPREDNISOLONE                 /00049602/ [Concomitant]
     Dosage: 24 MILLIGRAM, (DOSE INCREASED TO 24 MG)
  8. REMDESIVIR [Concomitant]
     Active Substance: REMDESIVIR
     Indication: COVID-19
     Dosage: UNK

REACTIONS (3)
  - Pulmonary toxicity [Recovering/Resolving]
  - COVID-19 pneumonia [Recovering/Resolving]
  - Contraindicated product administered [Unknown]
